FAERS Safety Report 17638280 (Version 1)
Quarter: 2020Q2

REPORT INFORMATION
  Report Type: Spontaneous
  Country: IT (occurrence: IT)
  Receive Date: 20200407
  Receipt Date: 20200407
  Transmission Date: 20200713
  Serious: Yes (Other)
  Sender: FDA-Public Use
  Company Number: IT-JNJFOC-20200343771

PATIENT
  Age: 62 Year
  Sex: Female
  Weight: 96 kg

DRUGS (1)
  1. RIVAROXABAN [Suspect]
     Active Substance: RIVAROXABAN
     Indication: ATRIAL FIBRILLATION
     Dosage: 20 MG, QD
     Route: 048

REACTIONS (3)
  - Tongue ulceration [Unknown]
  - Melaena [Unknown]
  - Haematemesis [Unknown]

NARRATIVE: CASE EVENT DATE: 20190730
